FAERS Safety Report 7039712-2 (Version None)
Quarter: 2010Q4

REPORT INFORMATION
  Report Type: 
  Country: None (occurrence: None)
  Receive Date: 20101012
  Receipt Date: 20101005
  Transmission Date: 20110411
  Serious: Yes (Life-Threatening)
  Sender: FDA-Public Use
  Company Number: IT-BAYER-201041564GPV

PATIENT
  Age: 51 Year
  Sex: Female

DRUGS (5)
  1. CIPROXIN [Suspect]
     Indication: URINARY TRACT INFECTION
     Route: 048
     Dates: start: 20091105, end: 20091111
  2. LORAZEPAM [Concomitant]
  3. EUTIROX [Concomitant]
     Route: 048
  4. DEPAKENE [Concomitant]
  5. DIAMICRON [Concomitant]
     Route: 048

REACTIONS (1)
  - EPILEPSY [None]
